FAERS Safety Report 7952904-0 (Version None)
Quarter: 2011Q4

REPORT INFORMATION
  Report Type: 
  Country: None (occurrence: None)
  Receive Date: 20111201
  Receipt Date: 20111122
  Transmission Date: 20120403
  Serious: Yes (Other)
  Sender: FDA-Public Use
  Company Number: BR-ASTRAZENECA-2011SE46268

PATIENT
  Sex: Female

DRUGS (1)
  1. NEXIUM [Suspect]
     Indication: GASTROOESOPHAGEAL REFLUX DISEASE
     Route: 048
     Dates: start: 20110601, end: 20110728

REACTIONS (4)
  - ALLERGY TO CHEMICALS [None]
  - SKIN PLAQUE [None]
  - FOOD ALLERGY [None]
  - MUSCULOSKELETAL PAIN [None]
